FAERS Safety Report 13895619 (Version 1)
Quarter: 2017Q3

REPORT INFORMATION
  Report Type: Spontaneous
  Country: US (occurrence: US)
  Receive Date: 20170823
  Receipt Date: 20170823
  Transmission Date: 20171127
  Serious: No
  Sender: FDA-Public Use
  Company Number: US-PFIZER INC-2017360586

PATIENT
  Age: 65 Year
  Sex: Female

DRUGS (3)
  1. METHYLPREDNISOLONE. [Suspect]
     Active Substance: METHYLPREDNISOLONE
     Dosage: 4 MG, UNK
  2. FUROSEMIDE. [Suspect]
     Active Substance: FUROSEMIDE
     Dosage: 20 MG, UNK
  3. GABAPENTIN. [Suspect]
     Active Substance: GABAPENTIN
     Dosage: 300 MG, UNK

REACTIONS (10)
  - Nodal osteoarthritis [Unknown]
  - Intervertebral disc degeneration [Unknown]
  - Musculoskeletal stiffness [Unknown]
  - Platelet count increased [Unknown]
  - Tenderness [Unknown]
  - Joint range of motion decreased [Unknown]
  - Pain [Unknown]
  - Joint dislocation [Unknown]
  - Joint swelling [Unknown]
  - Blood immunoglobulin A increased [Unknown]
